FAERS Safety Report 14777992 (Version 2)
Quarter: 2020Q2

REPORT INFORMATION
  Report Type: Report from Study
  Country: US (occurrence: US)
  Receive Date: 20180419
  Receipt Date: 20200516
  Transmission Date: 20200713
  Serious: Yes (Other)
  Sender: FDA-Public Use
  Company Number: PHEH2018US015091

PATIENT
  Sex: Male

DRUGS (2)
  1. ENTRESTO [Suspect]
     Active Substance: SACUBITRIL\VALSARTAN
     Indication: PRODUCT USED FOR UNKNOWN INDICATION
     Dosage: UNK
     Route: 065
  2. ENTRESTO [Suspect]
     Active Substance: SACUBITRIL\VALSARTAN
     Dosage: UNK
     Route: 065

REACTIONS (2)
  - Hypoacusis [Unknown]
  - Renal failure [Unknown]
